FAERS Safety Report 10220080 (Version 1)
Quarter: 2014Q2

REPORT INFORMATION
  Report Type: Spontaneous
  Country: IL (occurrence: IL)
  Receive Date: 20140605
  Receipt Date: 20140605
  Transmission Date: 20141212
  Serious: Yes (Hospitalization)
  Sender: FDA-Public Use
  Company Number: PHHY2014IL066887

PATIENT
  Age: 38 Year
  Sex: Female

DRUGS (2)
  1. METHOTREXATE [Suspect]
     Indication: PSORIATIC ARTHROPATHY
  2. METHOTREXATE [Suspect]
     Indication: TOBACCO USER

REACTIONS (11)
  - Hyponatraemia [Recovered/Resolved]
  - Urine output decreased [Recovered/Resolved]
  - Varicella zoster pneumonia [Recovered/Resolved]
  - Dyspnoea [Recovered/Resolved]
  - Scab [Recovered/Resolved]
  - Rash vesicular [Recovered/Resolved]
  - Rales [Recovered/Resolved]
  - Thrombocytopenia [Recovered/Resolved]
  - Hypoxia [Recovered/Resolved]
  - Sepsis [Recovered/Resolved]
  - Agitation [Recovered/Resolved]
